FAERS Safety Report 5327569-7 (Version None)
Quarter: 2007Q2

REPORT INFORMATION
  Report Type: 
  Country: None (occurrence: None)
  Receive Date: 20070517
  Receipt Date: 20070112
  Transmission Date: 20071010
  Serious: Yes (Hospitalization)
  Sender: FDA-Public Use
  Company Number: US-JNJFOC-20070103764

PATIENT
  Age: 40 Year
  Sex: Male

DRUGS (10)
  1. TRAMADOL HCL [Suspect]
     Indication: DRUG USE FOR UNKNOWN INDICATION
     Route: 065
  2. OTHER TYPE OF SKELETAL MUSCLE RELAXANT [Suspect]
     Indication: DRUG USE FOR UNKNOWN INDICATION
     Route: 065
  3. OTHER ANTICONVULSANT [Suspect]
     Indication: DRUG USE FOR UNKNOWN INDICATION
     Route: 065
  4. ACE INHIBITOR [Suspect]
     Indication: DRUG USE FOR UNKNOWN INDICATION
     Route: 065
  5. THIAZOLIDINEDIONE [Suspect]
     Indication: DRUG USE FOR UNKNOWN INDICATION
     Route: 065
  6. GLIMIPERIDE [Suspect]
     Indication: DRUG USE FOR UNKNOWN INDICATION
     Route: 065
  7. BENZTROPINE [Suspect]
     Indication: DRUG USE FOR UNKNOWN INDICATION
     Route: 065
  8. ATYPICAL ANTIPSYCHOTIC [Suspect]
     Indication: DRUG USE FOR UNKNOWN INDICATION
     Route: 065
  9. ANTIHYPERLIPIDEMIC [Suspect]
     Indication: DRUG USE FOR UNKNOWN INDICATION
     Route: 065
  10. PROTON PUMP INHIBITOR [Suspect]
     Indication: DRUG USE FOR UNKNOWN INDICATION
     Route: 065

REACTIONS (7)
  - COLLAPSE OF LUNG [None]
  - COMA [None]
  - CONVULSION [None]
  - GASTROINTESTINAL TUBE INSERTION [None]
  - MECHANICAL VENTILATION [None]
  - MULTIPLE DRUG OVERDOSE [None]
  - WHITE BLOOD CELL COUNT INCREASED [None]
